FAERS Safety Report 10276320 (Version 4)
Quarter: 2017Q4

REPORT INFORMATION
  Report Type: Spontaneous
  Country: US (occurrence: US)
  Receive Date: 20140703
  Receipt Date: 20171123
  Transmission Date: 20180320
  Serious: No
  Sender: FDA-Public Use
  Company Number: US-JNJFOC-20140702126

PATIENT
  Age: 14 Year
  Sex: Male

DRUGS (3)
  1. RISPERDAL [Suspect]
     Active Substance: RISPERIDONE
     Indication: AFFECTIVE DISORDER
     Dosage: VARIED DOSE OF 0.25 MG AND 0.5 MG IN VARIED FREQUENCY
     Route: 048
     Dates: start: 20061225, end: 20061231
  2. RISPERDAL [Suspect]
     Active Substance: RISPERIDONE
     Indication: MAJOR DEPRESSION
     Dosage: VARIED DOSE OF 0.25 MG AND 0.5 MG IN VARIED FREQUENCY
     Route: 048
     Dates: start: 20061225, end: 20061231
  3. RISPERDAL [Suspect]
     Active Substance: RISPERIDONE
     Indication: DRUG THERAPY
     Dosage: VARIED DOSE OF 0.25 MG AND 0.5 MG IN VARIED FREQUENCY
     Route: 048
     Dates: start: 20061225, end: 20061231

REACTIONS (7)
  - Abnormal weight gain [Unknown]
  - Galactorrhoea [Unknown]
  - Hyperprolactinaemia [Unknown]
  - Emotional disorder [Unknown]
  - Product use in unapproved indication [Unknown]
  - Gynaecomastia [Unknown]
  - Off label use [Unknown]

NARRATIVE: CASE EVENT DATE: 20061225
